FAERS Safety Report 8163332-X (Version None)
Quarter: 2012Q1

REPORT INFORMATION
  Report Type: 
  Country: None (occurrence: None)
  Receive Date: 20120224
  Receipt Date: 20120210
  Transmission Date: 20120608
  Serious: Yes (Hospitalization)
  Sender: FDA-Public Use
  Company Number: IT-RANBAXY-2010R1-40751

PATIENT
  Age: 47 Year
  Sex: Male

DRUGS (1)
  1. METFORMIN HCL [Suspect]
     Indication: TYPE 2 DIABETES MELLITUS
     Dosage: UNK
     Route: 065

REACTIONS (9)
  - METABOLIC ACIDOSIS [None]
  - DYSPNOEA [None]
  - HYPERVENTILATION [None]
  - AGITATION [None]
  - BUNDLE BRANCH BLOCK RIGHT [None]
  - TOXICITY TO VARIOUS AGENTS [None]
  - CONFUSIONAL STATE [None]
  - CARDIAC ARREST [None]
  - SINUS TACHYCARDIA [None]
